FAERS Safety Report 9777723 (Version 1)
Quarter: 2013Q4

REPORT INFORMATION
  Report Type: Spontaneous
  Country: FR (occurrence: FR)
  Receive Date: 20131223
  Receipt Date: 20131223
  Transmission Date: 20140711
  Serious: Yes (Other)
  Sender: FDA-Public Use
  Company Number: FR-AMGEN-FRASP2013089797

PATIENT
  Age: 66 Year
  Sex: Female

DRUGS (12)
  1. ENBREL [Suspect]
     Indication: PSORIATIC ARTHROPATHY
     Dosage: 50 MG, WEEKLY
     Route: 058
     Dates: start: 20121023, end: 20130205
  2. PREDNISONE [Suspect]
     Indication: PSORIATIC ARTHROPATHY
     Dosage: 5 MG, 1X/DAY
     Route: 048
     Dates: start: 20120406
  3. METOJECT [Suspect]
     Indication: PSORIATIC ARTHROPATHY
     Dosage: 20 MG, WEEKLY
     Route: 058
     Dates: start: 20120406, end: 20131126
  4. HUMIRA [Suspect]
     Indication: PSORIATIC ARTHROPATHY
     Dosage: 40 MG, EVERY 2 WEEKS
     Route: 058
     Dates: start: 20130213, end: 20131106
  5. GLIBENCLAMIDE [Concomitant]
     Dosage: UNK
  6. FUROSEMIDE [Concomitant]
     Dosage: UNK
  7. KARDEGIC [Concomitant]
     Dosage: UNK
  8. SOTALOL HYDROCHLORIDE [Concomitant]
     Dosage: UNK
  9. OMEPRAZOLE [Concomitant]
     Dosage: UNK
  10. SPECIAFOLDINE [Concomitant]
     Dosage: UNK
  11. CANDESARTAN CILEXETIL [Concomitant]
     Dosage: UNK
  12. BAMBUTEROL HYDROCHLORIDE [Concomitant]
     Dosage: UNK

REACTIONS (1)
  - Lymphoma [Not Recovered/Not Resolved]
